FAERS Safety Report 25092408 (Version 1)
Quarter: 2025Q1

REPORT INFORMATION
  Report Type: Report from Study
  Country: AR (occurrence: AR)
  Receive Date: 20250319
  Receipt Date: 20250319
  Transmission Date: 20250409
  Serious: Yes (Hospitalization)
  Sender: BIOGEN
  Company Number: AR-BIOGEN-2025BI01304123

PATIENT
  Age: 11 Year
  Sex: Female

DRUGS (2)
  1. SPINRAZA [Suspect]
     Active Substance: NUSINERSEN
     Indication: Spinal muscular atrophy
     Dosage: LAST ADMINISTRATION ON 05MAR2025
     Route: 050
     Dates: start: 20200428, end: 20250305
  2. VITAMIN D [Concomitant]
     Active Substance: VITAMIN D NOS
     Indication: Product used for unknown indication
     Route: 050

REACTIONS (3)
  - Bone cyst [Unknown]
  - Pharyngeal erythema [Recovered/Resolved]
  - Pyrexia [Recovered/Resolved]

NARRATIVE: CASE EVENT DATE: 20250217
